FAERS Safety Report 22280002 (Version 1)
Quarter: 2023Q2

REPORT INFORMATION
  Report Type: Spontaneous
  Country: GB (occurrence: GB)
  Receive Date: 20230503
  Receipt Date: 20230503
  Transmission Date: 20230722
  Serious: Yes (Other)
  Sender: FDA-Public Use
  Company Number: GB-JNJFOC-20230247153

PATIENT
  Age: 52 Year
  Sex: Female

DRUGS (12)
  1. LOPERAMIDE HYDROCHLORIDE [Interacting]
     Active Substance: LOPERAMIDE HYDROCHLORIDE
     Indication: Product used for unknown indication
     Dosage: DOSE: DOSE: 20 MG TID
     Route: 065
  2. AMITRIPTYLINE [Interacting]
     Active Substance: AMITRIPTYLINE
     Indication: Product used for unknown indication
     Route: 065
  3. CYCLIZINE HYDROCHLORIDE [Interacting]
     Active Substance: CYCLIZINE HYDROCHLORIDE
     Indication: Product used for unknown indication
     Dosage: DOSE: 50 MG TID
     Route: 065
  4. DALTEPARIN [Interacting]
     Active Substance: DALTEPARIN
     Indication: Product used for unknown indication
     Dosage: DOSE: 1800 MICROUNITS PER DAY
     Route: 065
  5. LEVOTHYROXINE [Interacting]
     Active Substance: LEVOTHYROXINE
     Indication: Product used for unknown indication
     Dosage: DOSE: 75 MCG QD
     Route: 065
  6. PROPRANOLOL [Interacting]
     Active Substance: PROPRANOLOL HYDROCHLORIDE
     Indication: Product used for unknown indication
     Route: 065
  7. SACITUZUMAB GOVITECAN [Interacting]
     Active Substance: SACITUZUMAB GOVITECAN
     Indication: Triple negative breast cancer
     Dosage: DOSE: FIRST CYCLE
     Route: 042
     Dates: start: 20221207
  8. SACITUZUMAB GOVITECAN [Interacting]
     Active Substance: SACITUZUMAB GOVITECAN
     Dosage: DOSE: SECOND AND THIRD CYCLE, DOSE UNKNOWN
     Route: 042
  9. DEXAMETHASONE [Concomitant]
     Active Substance: DEXAMETHASONE
     Indication: Premedication
     Dosage: PRE-MEDICATION
     Route: 065
  10. ONDANSETRON [Concomitant]
     Active Substance: ONDANSETRON
     Indication: Premedication
     Dosage: 1 DOSAGE FORM, PRE-MEDICATION
     Route: 065
  11. ACETAMINOPHEN [Concomitant]
     Active Substance: ACETAMINOPHEN
     Indication: Premedication
     Dosage: 1000 MG, PRE-MEDICATION
     Route: 065
  12. PREDNISOLONE [Concomitant]
     Active Substance: PREDNISOLONE
     Indication: Premedication
     Route: 065

REACTIONS (3)
  - Neutropenia [Unknown]
  - Emotional disorder [Unknown]
  - Drug interaction [Unknown]
